FAERS Safety Report 11909830 (Version 1)
Quarter: 2016Q1

REPORT INFORMATION
  Report Type: Report from Study
  Country: ES (occurrence: ES)
  Receive Date: 20160112
  Receipt Date: 20160112
  Transmission Date: 20160526
  Serious: Yes (Congenital Anomaly, Other)
  Sender: FDA-Public Use
  Company Number: ES-BRISTOL-MYERS SQUIBB COMPANY-14290357

PATIENT

DRUGS (4)
  1. DIDANOSINE. [Suspect]
     Active Substance: DIDANOSINE
     Indication: PRODUCT USED FOR UNKNOWN INDICATION
     Dosage: 1 DF, UNK
     Route: 064
     Dates: start: 20070814
  2. LOPINAVIR [Suspect]
     Active Substance: LOPINAVIR
     Indication: PRODUCT USED FOR UNKNOWN INDICATION
     Dosage: UNK
     Route: 064
     Dates: start: 20040224
  3. SAQUINAVIR [Suspect]
     Active Substance: SAQUINAVIR
     Indication: PRODUCT USED FOR UNKNOWN INDICATION
     Dosage: 2000 MG, UNK
     Route: 064
     Dates: start: 20040224
  4. ENFUVIRTIDE [Suspect]
     Active Substance: ENFUVIRTIDE
     Indication: PRODUCT USED FOR UNKNOWN INDICATION
     Dosage: UNK
     Route: 064
     Dates: start: 20040224

REACTIONS (5)
  - Heart disease congenital [Unknown]
  - Foetal exposure during pregnancy [Unknown]
  - Renal aplasia [Unknown]
  - Nervous system disorder [Unknown]
  - Trisomy 21 [Unknown]
